FAERS Safety Report 7111531-8 (Version None)
Quarter: 2010Q4

REPORT INFORMATION
  Report Type: 
  Country: None (occurrence: None)
  Receive Date: 20101118
  Receipt Date: 20101112
  Transmission Date: 20110411
  Serious: No
  Sender: FDA-Public Use
  Company Number: US-CEPHALON-2010005904

PATIENT
  Sex: Male
  Weight: 66 kg

DRUGS (2)
  1. FENTORA [Suspect]
     Indication: RHEUMATOID ARTHRITIS
     Route: 002
  2. FENTANYL [Concomitant]

REACTIONS (2)
  - DRUG INEFFECTIVE FOR UNAPPROVED INDICATION [None]
  - POOR QUALITY DRUG ADMINISTERED [None]
